FAERS Safety Report 6188344-7 (Version None)
Quarter: 2009Q2

REPORT INFORMATION
  Report Type: 
  Country: None (occurrence: None)
  Receive Date: 20090513
  Receipt Date: 20090429
  Transmission Date: 20091009
  Serious: Yes (Disabling, Other)
  Sender: FDA-Public Use
  Company Number: CH-AMGEN-STX338426

PATIENT
  Sex: Female
  Weight: 68 kg

DRUGS (9)
  1. MIMPARA [Suspect]
     Indication: HYPERPARATHYROIDISM SECONDARY
     Route: 048
     Dates: start: 20090101, end: 20090101
  2. KALETRA [Suspect]
     Route: 048
  3. LAMIVUDINE [Concomitant]
     Route: 048
  4. SAQUINAVIR [Concomitant]
     Route: 048
  5. MOXIFLOXACIN HCL [Concomitant]
  6. VENOFER [Concomitant]
     Route: 042
  7. CALCITRIOL [Concomitant]
     Route: 048
  8. EPOGEN [Concomitant]
     Route: 042
  9. NUTRITIONAL AGENTS AND VITAMINS [Concomitant]
     Route: 048

REACTIONS (4)
  - DYSPNOEA [None]
  - HYPERSENSITIVITY [None]
  - LOCAL SWELLING [None]
  - SWELLING FACE [None]
